FAERS Safety Report 18510643 (Version 1)
Quarter: 2020Q4

REPORT INFORMATION
  Report Type: Spontaneous
  Country: US (occurrence: US)
  Receive Date: 20201117
  Receipt Date: 20201117
  Transmission Date: 20210114
  Serious: Yes (Hospitalization)
  Sender: FDA-Public Use
  Company Number: US-009507513-2011USA008019

PATIENT
  Age: 66 Year
  Sex: Female

DRUGS (2)
  1. PRINIVIL [Suspect]
     Active Substance: LISINOPRIL
     Indication: UNEVALUABLE EVENT
  2. ASPIRIN. [Suspect]
     Active Substance: ASPIRIN
     Indication: UNEVALUABLE EVENT
     Dosage: 75 MILLIGRAM
     Route: 048
     Dates: start: 20000114, end: 20000203

REACTIONS (1)
  - Angioedema [Unknown]
